FAERS Safety Report 5879050-4 (Version None)
Quarter: 2008Q3

REPORT INFORMATION
  Report Type: 
  Country: None (occurrence: None)
  Receive Date: 20080912
  Receipt Date: 20080910
  Transmission Date: 20090109
  Serious: Yes (Hospitalization, Other)
  Sender: FDA-Public Use
  Company Number: PHEH2006US04085

PATIENT
  Sex: Female
  Weight: 69.841 kg

DRUGS (12)
  1. AREDIA [Suspect]
     Indication: METASTASES TO BONE
     Dates: start: 20010723
  2. ZOMETA [Suspect]
     Indication: METASTASES TO BONE
     Dosage: UNK Q4WKS
  3. THALIDOMIDE [Concomitant]
     Indication: MULTIPLE MYELOMA
     Dosage: 100MG QD
  4. TAMOXIFEN CITRATE [Concomitant]
     Indication: BREAST CANCER
     Dates: start: 19990201, end: 20031027
  5. FLECAINIDE ACETATE [Concomitant]
     Indication: ATRIAL FIBRILLATION
  6. GLIPIZIDE [Concomitant]
  7. PROCHLORPERAZINE [Concomitant]
  8. ATIVAN [Concomitant]
     Dosage: 1 MG
  9. NEUPOGEN [Concomitant]
  10. DEXAMETHASONE [Concomitant]
  11. COMPAZINE [Concomitant]
     Dosage: 10 MG
  12. TYLENOL (CAPLET) [Concomitant]
     Dosage: 650 MG

REACTIONS (16)
  - BONE DISORDER [None]
  - BONE SWELLING [None]
  - BREAST CANCER IN SITU [None]
  - BREAST RECONSTRUCTION [None]
  - DIABETES MELLITUS [None]
  - GINGIVAL ERYTHEMA [None]
  - GINGIVAL PAIN [None]
  - GRANULOMA [None]
  - INFECTION [None]
  - JAW FRACTURE [None]
  - LYMPHOMA [None]
  - MASTECTOMY [None]
  - OSTEONECROSIS [None]
  - PAIN [None]
  - PRIMARY SEQUESTRUM [None]
  - PYREXIA [None]
